FAERS Safety Report 24580457 (Version 2)
Quarter: 2024Q4

REPORT INFORMATION
  Report Type: Spontaneous
  Country: US (occurrence: US)
  Receive Date: 20241105
  Receipt Date: 20241111
  Transmission Date: 20250114
  Serious: Yes (Other)
  Sender: PFIZER
  Company Number: US-PFIZER INC-PV202400140930

PATIENT
  Age: 60 Year
  Sex: Female

DRUGS (5)
  1. FUROSEMIDE [Suspect]
     Active Substance: FUROSEMIDE
     Indication: Cardiac failure congestive
     Dosage: UNK
     Route: 042
  2. FUROSEMIDE [Suspect]
     Active Substance: FUROSEMIDE
     Dosage: INITIAL 1 MG FOLLOWED BY SMALL GRADUAL INCREASES, UNTIL A FINAL DOSE OF 40 MG/20-MINUTE INTERVALS
     Route: 048
  3. FUROSEMIDE [Concomitant]
     Active Substance: FUROSEMIDE
     Indication: Cardiac failure congestive
     Dosage: 40 MG, DAILY
     Route: 048
  4. MILRINONE [Concomitant]
     Active Substance: MILRINONE
     Indication: Cardiac failure congestive
     Dosage: UNK
  5. ETHACRYNIC ACID [Concomitant]
     Active Substance: ETHACRYNIC ACID
     Indication: Cardiac failure congestive

REACTIONS (9)
  - Drug hypersensitivity [Recovered/Resolved]
  - Allergic reaction to excipient [Recovered/Resolved]
  - Urticaria [Recovered/Resolved]
  - Dyspnoea [Recovered/Resolved]
  - Wheezing [Recovered/Resolved]
  - Off label use [Unknown]
  - Contraindicated product administered [Unknown]
  - Product use issue [Unknown]
  - Product use issue [Unknown]
